FAERS Safety Report 6124184-2 (Version None)
Quarter: 2009Q1

REPORT INFORMATION
  Report Type: 
  Country: None (occurrence: None)
  Receive Date: 20090319
  Receipt Date: 20090310
  Transmission Date: 20090719
  Serious: Yes (Hospitalization)
  Sender: FDA-Public Use
  Company Number: US-JNJFOC-20090303015

PATIENT
  Sex: Male

DRUGS (5)
  1. LEVAQUIN [Suspect]
     Route: 048
  2. LEVAQUIN [Suspect]
     Indication: DRUG USE FOR UNKNOWN INDICATION
     Route: 048
  3. BMS663513 [Suspect]
     Indication: MALIGNANT MELANOMA
     Route: 042
  4. NEURONTIN [Concomitant]
     Route: 065
  5. PROTONIX [Concomitant]
     Route: 065

REACTIONS (3)
  - DRUG HYPERSENSITIVITY [None]
  - HEPATIC FUNCTION ABNORMAL [None]
  - HERPES SIMPLEX [None]
